FAERS Safety Report 6142175-2 (Version None)
Quarter: 2009Q2

REPORT INFORMATION
  Report Type: 
  Country: None (occurrence: None)
  Receive Date: 20090402
  Receipt Date: 20090326
  Transmission Date: 20091009
  Serious: Yes (Other)
  Sender: FDA-Public Use
  Company Number: US-JNJCH-2009008567

PATIENT
  Age: 82 Year
  Sex: Male
  Weight: 68 kg

DRUGS (1)
  1. SUDAFED PE NON DRYING SINUS [Suspect]
     Indication: PARANASAL SINUS HYPERSECRETION
     Dosage: TEXT:2 CAPLETS ONE TIME
     Route: 048
     Dates: start: 20090325, end: 20090325

REACTIONS (1)
  - URINARY RETENTION [None]
